FAERS Safety Report 6055088-1 (Version None)
Quarter: 2009Q1

REPORT INFORMATION
  Report Type: 
  Country: None (occurrence: None)
  Receive Date: 20090122
  Receipt Date: 20090109
  Transmission Date: 20090719
  Serious: Yes (Hospitalization)
  Sender: FDA-Public Use
  Company Number: DSA_33100_2009

PATIENT
  Age: 86 Year
  Sex: Female

DRUGS (8)
  1. ENALAPRIL MALEATE [Suspect]
     Indication: HYPERTENSION
     Dosage: (5 MG BID ORAL)
     Route: 048
  2. CORDAREX /00133102/ (CORDAREX - AMIODARONE HYDROCHLORIDE) (NOT SPECIFI [Suspect]
     Indication: SUPRAVENTRICULAR TACHYCARDIA
     Dosage: (100 MG BID ORAL)
     Route: 048
  3. SPIRONOLACTONE [Suspect]
     Indication: OEDEMA
     Dosage: (50 MG QD)
     Dates: end: 20080805
  4. TOREM /01036501/ (TOREM - TORSEMIDE) 5MG (NOT SPECIFIED) [Suspect]
     Indication: CARDIAC FAILURE
     Dosage: (5 MG QD ORAL)
     Route: 048
     Dates: end: 20080805
  5. ASPIRIN [Concomitant]
  6. CARVEDILOL [Concomitant]
  7. CLOPIDOGREL [Concomitant]
  8. PENTAERYTHRETOL TETRANITRATE [Concomitant]

REACTIONS (6)
  - DEHYDRATION [None]
  - GAMMA-GLUTAMYLTRANSFERASE INCREASED [None]
  - GENERAL PHYSICAL HEALTH DETERIORATION [None]
  - HYPERKALAEMIA [None]
  - HYPONATRAEMIA [None]
  - HYPOTHYROIDISM [None]
